FAERS Safety Report 13228808 (Version 4)
Quarter: 2018Q1

REPORT INFORMATION
  Report Type: Spontaneous
  Country: US (occurrence: US)
  Receive Date: 20170213
  Receipt Date: 20180131
  Transmission Date: 20180508
  Serious: Yes (Death, Life-Threatening, Hospitalization, Other)
  Sender: FDA-Public Use
  Company Number: US-MYLANLABS-2017M1008752

PATIENT
  Age: 40 Year
  Sex: Male

DRUGS (5)
  1. CLOZAPINE. [Suspect]
     Active Substance: CLOZAPINE
     Indication: SCHIZOPHRENIA
     Dosage: 400 MG, PM
  2. CLOZAPINE. [Suspect]
     Active Substance: CLOZAPINE
     Dosage: 350 MG, PM
     Route: 065
  3. IBUPROFEN. [Concomitant]
     Active Substance: IBUPROFEN
     Indication: ARTHRALGIA
     Dosage: 600 MG, PRN
  4. CLOZAPINE. [Suspect]
     Active Substance: CLOZAPINE
     Dosage: 25 MG, PM
  5. OMEPRAZOLE. [Concomitant]
     Active Substance: OMEPRAZOLE
     Indication: PRODUCT USED FOR UNKNOWN INDICATION
     Dosage: 20 MG, QD

REACTIONS (11)
  - Circulatory collapse [Unknown]
  - Blood creatine phosphokinase increased [Unknown]
  - Immobilisation prolonged [Unknown]
  - Delusion [Unknown]
  - Treatment noncompliance [Unknown]
  - Pulmonary embolism [Fatal]
  - Hallucination, auditory [Unknown]
  - Anxiety [Unknown]
  - Antipsychotic drug level decreased [Unknown]
  - Platelet count decreased [Unknown]
  - Antipsychotic drug level increased [Recovering/Resolving]
